FAERS Safety Report 10441129 (Version 1)
Quarter: 2014Q3

REPORT INFORMATION
  Report Type: Spontaneous
  Country: US (occurrence: None)
  Receive Date: 20140908
  Receipt Date: 20140908
  Transmission Date: 20150326
  Serious: Yes (Other)
  Sender: FDA-Public Use
  Company Number: None

PATIENT
  Age: 70 Year
  Sex: Female
  Weight: 106.6 kg

DRUGS (3)
  1. LISINOPRIL. [Concomitant]
     Active Substance: LISINOPRIL
  2. CLONIDINE. [Concomitant]
     Active Substance: CLONIDINE
  3. ALLOPURINOL 100 MG [Suspect]
     Active Substance: ALLOPURINOL
     Indication: GOUT
     Dosage: 100MG, 1 TAB, ONCE DAILY, BY MOUTH
     Route: 048
     Dates: start: 20140703, end: 20140703

REACTIONS (3)
  - Nausea [None]
  - Vomiting [None]
  - Retching [None]

NARRATIVE: CASE EVENT DATE: 20140703
